FAERS Safety Report 6674383-6 (Version None)
Quarter: 2010Q2

REPORT INFORMATION
  Report Type: 
  Country: None (occurrence: None)
  Receive Date: 20100409
  Receipt Date: 20100330
  Transmission Date: 20101027
  Serious: Yes (Hospitalization)
  Sender: FDA-Public Use
  Company Number: IT-PFIZER INC-2010023087

PATIENT
  Age: 21 Year
  Sex: Male

DRUGS (3)
  1. ZYVOXID [Suspect]
     Indication: ABDOMINAL ABSCESS
     Dosage: 1200 MG, DAILY
     Route: 048
     Dates: start: 20091128, end: 20100205
  2. CIPROFLOXACIN [Concomitant]
  3. CITALOPRAM [Concomitant]

REACTIONS (2)
  - HICCUPS [None]
  - NEUROPATHY PERIPHERAL [None]
